FAERS Safety Report 5904865-3 (Version None)
Quarter: 2008Q4

REPORT INFORMATION
  Report Type: 
  Country: None (occurrence: None)
  Receive Date: 20081001
  Receipt Date: 20080925
  Transmission Date: 20090506
  Serious: Yes (Other)
  Sender: FDA-Public Use
  Company Number: A0749234A

PATIENT
  Age: 58 Year
  Sex: Female

DRUGS (11)
  1. VERAMYST [Suspect]
     Indication: POSTNASAL DRIP
     Dosage: 2SPR PER DAY
     Route: 045
     Dates: start: 20070101
  2. SINGULAIR [Concomitant]
  3. XYZAL [Concomitant]
  4. METFORMIN HCL [Concomitant]
  5. LEVOTHYROXINE SODIUM [Concomitant]
  6. LOTREL [Concomitant]
  7. NEXIUM [Concomitant]
  8. SIMVASTATIN [Concomitant]
  9. ADVAIR DISKUS 100/50 [Concomitant]
  10. UNKNOWN NEBULIZER MEDICATION [Concomitant]
  11. MEDENT [Concomitant]

REACTIONS (6)
  - AGEUSIA [None]
  - ANOSMIA [None]
  - EPISTAXIS [None]
  - NASAL DISCOMFORT [None]
  - OVERDOSE [None]
  - SINUS OPERATION [None]
